FAERS Safety Report 12089414 (Version 2)
Quarter: 2016Q1

REPORT INFORMATION
  Report Type: Spontaneous
  Country: GB (occurrence: GB)
  Receive Date: 20160218
  Receipt Date: 20160310
  Transmission Date: 20160526
  Serious: Yes (Hospitalization, Other)
  Sender: FDA-Public Use
  Company Number: GB-WATSON-2016-02702

PATIENT
  Age: 44 Year
  Sex: Male
  Weight: 95 kg

DRUGS (1)
  1. PREDNISOLONE (UNKNOWN) [Suspect]
     Active Substance: PREDNISOLONE
     Indication: ALOPECIA AREATA
     Dosage: 40 MG REDUCING BY 5MG EVERY 3 DAYS
     Route: 048
     Dates: start: 20120913, end: 20121024

REACTIONS (5)
  - Insomnia [Recovered/Resolved with Sequelae]
  - Supraventricular tachycardia [Recovered/Resolved]
  - Mood swings [Recovered/Resolved with Sequelae]
  - Depression [Recovered/Resolved with Sequelae]
  - Arrhythmia [Unknown]

NARRATIVE: CASE EVENT DATE: 20121013
